FAERS Safety Report 5700019-4 (Version None)
Quarter: 2008Q2

REPORT INFORMATION
  Report Type: 
  Country: None (occurrence: None)
  Receive Date: 20080410
  Receipt Date: 20080331
  Transmission Date: 20081010
  Serious: No
  Sender: FDA-Public Use
  Company Number: US-ASTRAZENECA-2008UW06419

PATIENT
  Age: 55 Year
  Sex: Female
  Weight: 45.4 kg

DRUGS (3)
  1. SEROQUEL [Suspect]
     Indication: DEPRESSION
     Route: 048
     Dates: start: 20060101, end: 20080101
  2. ATIVAN [Concomitant]
  3. LIPITOR [Concomitant]

REACTIONS (4)
  - HAEMOGLOBIN DECREASED [None]
  - HALLUCINATION [None]
  - NAUSEA [None]
  - PROTEIN TOTAL INCREASED [None]
